FAERS Safety Report 9831909 (Version 1)
Quarter: 2014Q1

REPORT INFORMATION
  Report Type: Spontaneous
  Country: US (occurrence: US)
  Receive Date: 20140121
  Receipt Date: 20140121
  Transmission Date: 20141002
  Serious: No
  Sender: FDA-Public Use
  Company Number: US-PFIZER INC-2014014992

PATIENT
  Sex: Female

DRUGS (1)
  1. TOVIAZ [Suspect]
     Indication: NOCTURIA
     Dosage: 4 MG, 1X/DAY
     Dates: start: 20140113

REACTIONS (5)
  - Pollakiuria [Unknown]
  - Urine flow decreased [Unknown]
  - Urine output decreased [Unknown]
  - Drug effect incomplete [Unknown]
  - Dysphonia [Unknown]
